FAERS Safety Report 19914045 (Version 2)
Quarter: 2022Q1

REPORT INFORMATION
  Report Type: Report from Study
  Country: US (occurrence: US)
  Receive Date: 20211004
  Receipt Date: 20220115
  Transmission Date: 20220424
  Serious: Yes (Hospitalization)
  Sender: FDA-Public Use
  Company Number: US-REGENERON PHARMACEUTICALS, INC.-2021-89218

PATIENT
  Age: 71 Year
  Sex: Male

DRUGS (2)
  1. CASIRIVIMAB\IMDEVIMAB [Suspect]
     Active Substance: CASIRIVIMAB\IMDEVIMAB
     Indication: COVID-19 treatment
     Dosage: UNK UNK, SINGLE
     Route: 042
     Dates: start: 20210826, end: 20210826
  2. Vicks Cold Medicine [Concomitant]
     Indication: Sinus congestion
     Dosage: UNK
     Route: 048
     Dates: start: 20210821, end: 20210826

REACTIONS (3)
  - Gastrointestinal haemorrhage [Recovering/Resolving]
  - Blood pressure decreased [Recovering/Resolving]
  - Haemoglobin decreased [Recovering/Resolving]

NARRATIVE: CASE EVENT DATE: 20210827
